FAERS Safety Report 6327567-0 (Version None)
Quarter: 2009Q3

REPORT INFORMATION
  Report Type: 
  Country: None (occurrence: None)
  Receive Date: 20090825
  Receipt Date: 20090818
  Transmission Date: 20100115
  Serious: Yes (Other)
  Sender: FDA-Public Use
  Company Number: US-ELI_LILLY_AND_COMPANY-2006PV012928

PATIENT
  Sex: Female

DRUGS (3)
  1. EXENATIDE [Suspect]
     Indication: WEIGHT DECREASED
     Dosage: 5 UG, 2/D
     Route: 058
     Dates: start: 20060101, end: 20060101
  2. EXENATIDE [Suspect]
     Dosage: 10 UG, UNK
     Route: 058
     Dates: start: 20060101, end: 20060101
  3. EXENATIDE [Suspect]
     Dosage: 5 UG, UNK
     Route: 058
     Dates: start: 20060101, end: 20060101

REACTIONS (8)
  - DRUG HYPERSENSITIVITY [None]
  - DRUG INEFFECTIVE [None]
  - INFLUENZA [None]
  - OFF LABEL USE [None]
  - THYROID CANCER [None]
  - THYROID NEOPLASM [None]
  - URTICARIA [None]
  - WEIGHT DECREASED [None]
